FAERS Safety Report 15206080 (Version 9)
Quarter: 2020Q3

REPORT INFORMATION
  Report Type: Spontaneous
  Country: JP (occurrence: JP)
  Receive Date: 20180727
  Receipt Date: 20200814
  Transmission Date: 20201102
  Serious: Yes (Death, Hospitalization, Other)
  Sender: FDA-Public Use
  Company Number: JP-009507513-1807JPN002248J

PATIENT
  Age: 75 Year
  Sex: Male
  Weight: 45 kg

DRUGS (11)
  1. TAKEPRON [Suspect]
     Active Substance: LANSOPRAZOLE
     Indication: GASTRIC ULCER
     Dosage: 15 MILLIGRAM, QD
     Route: 048
     Dates: start: 201806
  2. TRYPTANOL [Suspect]
     Active Substance: AMITRIPTYLINE
     Indication: ANALGESIC THERAPY
     Dosage: 10 MILLIGRAM, QD
     Route: 048
     Dates: start: 20180619, end: 20180620
  3. CEFMETAZOLE [Suspect]
     Active Substance: CEFMETAZOLE
     Indication: ANTIBIOTIC PROPHYLAXIS
     Dosage: 1 GRAM, BID
     Route: 042
     Dates: start: 20180621, end: 20180626
  4. FENTOS [Suspect]
     Active Substance: FENTANYL
     Dosage: 2 MILLIGRAM, QD
     Dates: start: 201806
  5. SELBEX [Concomitant]
     Active Substance: TEPRENONE
     Indication: PROPHYLAXIS AGAINST GASTROINTESTINAL ULCER
     Dosage: 50 MILLIGRAM, TID
     Route: 048
     Dates: start: 201806
  6. TRYPTANOL [Suspect]
     Active Substance: AMITRIPTYLINE
     Dosage: 20 MILLIGRAM, QD
     Route: 048
     Dates: start: 20180621, end: 20180628
  7. MAGMITT [Concomitant]
     Active Substance: MAGNESIUM OXIDE
     Indication: CONSTIPATION
     Dosage: 330 MILLIGRAM
     Route: 048
     Dates: start: 201806
  8. ABSTRAL [Concomitant]
     Active Substance: FENTANYL CITRATE
     Dosage: UNK
     Route: 048
  9. KEYTRUDA [Suspect]
     Active Substance: PEMBROLIZUMAB
     Indication: NON-SMALL CELL LUNG CANCER
     Dosage: 200 MILLIGRAM, Q3W
     Route: 041
     Dates: start: 20180621, end: 20180621
  10. FENTOS [Suspect]
     Active Substance: FENTANYL
     Indication: ANALGESIC THERAPY
     Dosage: 1 MILLIGRAM, QD
     Dates: start: 201806
  11. CALONAL [Concomitant]
     Active Substance: ACETAMINOPHEN
     Indication: ANALGESIC THERAPY
     Dosage: 500 MILLIGRAM, QID
     Route: 048
     Dates: start: 20180502, end: 20180627

REACTIONS (6)
  - Eosinophil count increased [Recovering/Resolving]
  - Drug-induced liver injury [Not Recovered/Not Resolved]
  - Cholangitis sclerosing [Recovering/Resolving]
  - Myocardial infarction [Fatal]
  - Hepatitis [Recovering/Resolving]
  - Primary biliary cholangitis [Unknown]

NARRATIVE: CASE EVENT DATE: 2018
